FAERS Safety Report 9219563 (Version 2)
Quarter: 2013Q3

REPORT INFORMATION
  Report Type: Spontaneous
  Country: US (occurrence: US)
  Receive Date: 20130409
  Receipt Date: 20130717
  Transmission Date: 20140515
  Serious: Yes (Other)
  Sender: FDA-Public Use
  Company Number: US-PFIZER INC-2013107942

PATIENT
  Age: 56 Year
  Sex: Female
  Weight: 71.66 kg

DRUGS (1)
  1. LEVOTHYROXINE SODIUM [Suspect]
     Dosage: UNK

REACTIONS (3)
  - Product quality issue [Unknown]
  - Choking [Unknown]
  - Drug intolerance [Unknown]
